FAERS Safety Report 4389246-9 (Version None)
Quarter: 2004Q2

REPORT INFORMATION
  Report Type: 
  Country: None (occurrence: None)
  Receive Date: 20040628
  Receipt Date: 20040615
  Transmission Date: 20050107
  Serious: Yes (Disabling)
  Sender: FDA-Public Use
  Company Number: 04P-167-0263971-00

PATIENT
  Age: 76 Year
  Sex: Female
  Weight: 60 kg

DRUGS (8)
  1. HUMIRA [Suspect]
     Indication: RHEUMATOID ARTHRITIS
     Dosage: 40 MG, 1 IN 2 WK, SUBCUTANEOUS
     Route: 058
     Dates: start: 20031001
  2. ACETAMINOPHEN AND CODEINE PHOSPHATE [Concomitant]
  3. TRAMADOL [Concomitant]
  4. PREDNISOLONE [Concomitant]
  5. CARBAZOCHROME [Concomitant]
  6. ALENDRONATE SODIUM [Concomitant]
  7. CEPHALEXIN [Concomitant]
  8. METHOTREXATE SODIUM [Concomitant]

REACTIONS (3)
  - CLAVICLE FRACTURE [None]
  - FALL [None]
  - JOINT DISLOCATION [None]
